FAERS Safety Report 7622799-3 (Version None)
Quarter: 2011Q3

REPORT INFORMATION
  Report Type: 
  Country: None (occurrence: None)
  Receive Date: 20110719
  Receipt Date: 20110719
  Transmission Date: 20111222
  Serious: Yes (Hospitalization)
  Sender: FDA-Public Use
  Company Number: None

PATIENT
  Sex: Male
  Weight: 21.7727 kg

DRUGS (2)
  1. DEPAKENE [Suspect]
     Indication: CONVULSION
     Dosage: 4 CC EVERY 8 HRS ORAL 0407
     Route: 048
     Dates: start: 20110708
  2. DEPAKOTE [Suspect]
     Indication: CONVULSION
     Dosage: 1 AM ~ 2 HS AM / HS ORAL 0407
     Route: 048
     Dates: start: 20100301

REACTIONS (3)
  - DRUG INTOLERANCE [None]
  - VOMITING [None]
  - CONVULSION [None]
